FAERS Safety Report 4530367-5 (Version None)
Quarter: 2004Q4

REPORT INFORMATION
  Report Type: 
  Country: None (occurrence: None)
  Receive Date: 20041215
  Receipt Date: 20041209
  Transmission Date: 20050328
  Serious: Yes (Death)
  Sender: FDA-Public Use
  Company Number: HQWYE873009DEC04

PATIENT
  Age: 79 Year
  Sex: Female

DRUGS (4)
  1. PANTOPRAZOLE SODIUM [Suspect]
     Indication: GASTROOESOPHAGEAL REFLUX DISEASE
     Dosage: 40 MG 2X PER 1 DAY
     Route: 048
     Dates: start: 20041112, end: 20041115
  2. PANTOPRAZOLE SODIUM [Suspect]
     Indication: OESOPHAGITIS
     Dosage: 40 MG 2X PER 1 DAY
     Route: 048
     Dates: start: 20041112, end: 20041115
  3. ASPIRIN [Concomitant]
  4. BELOC-ZOC MITE (METOPROLOL SUCCINATE) [Concomitant]

REACTIONS (1)
  - MYOCARDIAL INFARCTION [None]
